FAERS Safety Report 11734550 (Version 1)
Quarter: 2015Q4

REPORT INFORMATION
  Report Type: Other
  Country: AR (occurrence: AR)
  Receive Date: 20151113
  Receipt Date: 20151113
  Transmission Date: 20160304
  Serious: Yes (Other)
  Sender: FDA-Public Use
  Company Number: AR-SHIRE-AR201512870

PATIENT
  Sex: Female
  Weight: 65 kg

DRUGS (1)
  1. VPRIV [Suspect]
     Active Substance: VELAGLUCERASE ALFA
     Indication: GAUCHER^S DISEASE
     Dosage: 60 U/KG OF WEIGHT, 1X/2WKS
     Route: 041
     Dates: start: 20110101

REACTIONS (3)
  - Maternal exposure during pregnancy [Recovered/Resolved]
  - Menorrhagia [Unknown]
  - Abortion spontaneous [Recovered/Resolved]

NARRATIVE: CASE EVENT DATE: 2015
